FAERS Safety Report 18753538 (Version 1)
Quarter: 2021Q1

REPORT INFORMATION
  Report Type: Spontaneous
  Country: AU (occurrence: AU)
  Receive Date: 20210118
  Receipt Date: 20210118
  Transmission Date: 20210419
  Serious: Yes (Other)
  Sender: FDA-Public Use
  Company Number: AU-ANIPHARMA-2020-AU-000313

PATIENT
  Age: 9 Month
  Sex: Female

DRUGS (1)
  1. PROPRANOLOL EXTENDED RELEASE CAPSULES (NON?SPECIFIC) [Suspect]
     Active Substance: PROPRANOLOL HYDROCHLORIDE
     Indication: INFANTILE HAEMANGIOMA
     Route: 048

REACTIONS (3)
  - Growth retardation [Unknown]
  - Developmental delay [Unknown]
  - Cognitive disorder [Unknown]
